FAERS Safety Report 17152357 (Version 1)
Quarter: 2019Q4

REPORT INFORMATION
  Report Type: Spontaneous
  Country: DE (occurrence: DE)
  Receive Date: 20191213
  Receipt Date: 20191213
  Transmission Date: 20200122
  Serious: Yes (Hospitalization)
  Sender: FDA-Public Use
  Company Number: DE-MYLANLABS-2019M1122444

PATIENT
  Age: 91 Year
  Sex: Female

DRUGS (4)
  1. OXYCODON [Concomitant]
     Active Substance: OXYCODONE
     Dosage: 10 MG, 1-0-1-0
  2. METAMIZOL                          /06276701/ [Concomitant]
     Active Substance: METAMIZOLE
     Dosage: 500 MG, 1-1-1-1
  3. PROTHIPENDYL [Suspect]
     Active Substance: PROTHIPENDYL
     Indication: PRODUCT USED FOR UNKNOWN INDICATION
     Dosage: 40 MG, 0-0-0-1
  4. SERTRALINE [Suspect]
     Active Substance: SERTRALINE HYDROCHLORIDE
     Indication: PRODUCT USED FOR UNKNOWN INDICATION
     Dosage: 50 MG, 1-0-0-0

REACTIONS (4)
  - Haematoma [Unknown]
  - Wound [Unknown]
  - Fall [Unknown]
  - Drug interaction [Unknown]
